FAERS Safety Report 13477082 (Version 2)
Quarter: 2017Q2

REPORT INFORMATION
  Report Type: Spontaneous
  Country: US (occurrence: US)
  Receive Date: 20170425
  Receipt Date: 20170504
  Transmission Date: 20170830
  Serious: Yes (Hospitalization, Other)
  Sender: FDA-Public Use
  Company Number: US-PFIZER INC-2017174084

PATIENT
  Age: 67 Year
  Sex: Male
  Weight: 58.97 kg

DRUGS (1)
  1. SUTENT [Suspect]
     Active Substance: SUNITINIB MALATE
     Dosage: 50 MG, CYCLIC (ONCE A DAY FOR 14 DAYS, THEN SKIP 2 WEEKS)
     Route: 048
     Dates: start: 20170323, end: 20170413

REACTIONS (9)
  - Malaise [Unknown]
  - Tremor [Unknown]
  - Pneumonia [Unknown]
  - Feeling cold [Unknown]
  - Confusional state [Unknown]
  - Neoplasm progression [Unknown]
  - Eating disorder [Unknown]
  - Body temperature decreased [Unknown]
  - Hallucination, visual [Unknown]

NARRATIVE: CASE EVENT DATE: 201703
